FAERS Safety Report 8560622-3 (Version None)
Quarter: 2012Q3

REPORT INFORMATION
  Report Type: 
  Country: None (occurrence: None)
  Receive Date: 20120802
  Receipt Date: 20120726
  Transmission Date: 20120928
  Serious: Yes (Hospitalization, Other)
  Sender: FDA-Public Use
  Company Number: JP-VERTEX PHARMACEUTICALS INC.-AE-2012-004048

PATIENT
  Age: 60 Year
  Sex: Female

DRUGS (11)
  1. TELAVIC (TELAPREVIR) [Suspect]
     Indication: HEPATITIS C
     Route: 048
     Dates: start: 20120201, end: 20120228
  2. MILMAG [Concomitant]
     Route: 048
     Dates: end: 20120604
  3. BROTIZOLAM [Concomitant]
     Route: 048
  4. TELAVIC (TELAPREVIR) [Suspect]
     Route: 048
     Dates: start: 20120229, end: 20120307
  5. PEGINTERFERON ALFA-2B [Concomitant]
     Indication: HEPATITIS C
     Route: 058
     Dates: start: 20120201, end: 20120222
  6. PEGINTERFERON ALFA-2B [Concomitant]
     Route: 058
     Dates: start: 20120229, end: 20120229
  7. RIBAVIRIN [Concomitant]
     Indication: HEPATITIS C
     Route: 048
     Dates: start: 20120201, end: 20120214
  8. RIBAVIRIN [Concomitant]
     Route: 048
     Dates: start: 20120215, end: 20120307
  9. SENNOSIDE [Concomitant]
     Route: 048
  10. BROTIZOLAM [Concomitant]
     Route: 048
  11. HOCHUEKKITO [Concomitant]
     Route: 048
     Dates: end: 20120702

REACTIONS (3)
  - ANAEMIA [None]
  - DEPRESSION [None]
  - DECREASED APPETITE [None]
